FAERS Safety Report 23494273 (Version 3)
Quarter: 2024Q2

REPORT INFORMATION
  Report Type: Report from Study
  Country: CH (occurrence: DE)
  Receive Date: 20240207
  Receipt Date: 20240502
  Transmission Date: 20240716
  Serious: Yes (Death, Hospitalization)
  Sender: FDA-Public Use
  Company Number: CH-OPKO PHARMACEUTICALS, LLC.-2024OPK00023

PATIENT
  Sex: Female
  Weight: 54 kg

DRUGS (9)
  1. RAYALDEE [Suspect]
     Active Substance: CALCIFEDIOL
     Indication: Hyperparathyroidism secondary
     Dosage: 30 MCG, QD
     Route: 048
     Dates: start: 20231218, end: 20240326
  2. RALTEGRAVIR [Concomitant]
     Active Substance: RALTEGRAVIR
     Indication: HIV infection
     Dosage: 1200 MG
     Route: 048
     Dates: start: 20230703
  3. DORAVIRINE [Concomitant]
     Active Substance: DORAVIRINE
     Indication: HIV infection
     Dosage: 100 MG
     Route: 048
     Dates: start: 20230703
  4. MARAVIROC [Concomitant]
     Active Substance: MARAVIROC
     Indication: HIV infection
     Dosage: 600 MG
     Route: 048
     Dates: start: 20230703
  5. VALGANCICLOVIR [Concomitant]
     Active Substance: VALGANCICLOVIR
     Indication: Antiviral prophylaxis
     Dosage: UNK, BID
     Route: 048
     Dates: start: 20230114
  6. PRAVASTATIN [Concomitant]
     Active Substance: PRAVASTATIN
     Indication: Hyperlipidaemia
     Dosage: 40 MG
     Route: 048
     Dates: start: 20230719
  7. TORSEMIDE [Concomitant]
     Active Substance: TORSEMIDE
     Indication: Chronic kidney disease
     Dosage: UNK
     Route: 048
  8. PREDNISOLONE [Concomitant]
     Active Substance: PREDNISOLONE
     Indication: Chronic kidney disease
     Dosage: 5 MG
     Route: 048
     Dates: start: 20230714
  9. MYCOPHENOLATE MOFETIL [Concomitant]
     Active Substance: MYCOPHENOLATE MOFETIL
     Indication: Renal transplant
     Dosage: UNK, BID
     Route: 048
     Dates: start: 20230714

REACTIONS (3)
  - Oesophagitis [Recovered/Resolved]
  - Stomatitis [Recovered/Resolved]
  - Completed suicide [Fatal]

NARRATIVE: CASE EVENT DATE: 20240105
